FAERS Safety Report 7264454-8 (Version None)
Quarter: 2011Q1

REPORT INFORMATION
  Report Type: 
  Country: None (occurrence: None)
  Receive Date: 20110131
  Receipt Date: 20110118
  Transmission Date: 20110831
  Serious: Yes (Hospitalization)
  Sender: FDA-Public Use
  Company Number: US-JNJFOC-20110105572

PATIENT
  Sex: Female
  Weight: 76.5 kg

DRUGS (8)
  1. METHOTREXATE [Suspect]
     Indication: RHEUMATOID ARTHRITIS
     Route: 048
  2. METHOTREXATE [Concomitant]
     Route: 048
  3. GOLIMUMAB [Suspect]
     Indication: RHEUMATOID ARTHRITIS
     Route: 058
  4. GOLIMUMAB [Suspect]
     Route: 058
  5. TRIAMTERENE [Concomitant]
     Indication: DIURETIC THERAPY
     Route: 048
  6. PLACEBO [Suspect]
     Indication: RHEUMATOID ARTHRITIS
     Route: 048
  7. DARVOCET-N 100 [Concomitant]
     Indication: ARTHRALGIA
     Route: 048
  8. FOLIC ACID [Concomitant]
     Indication: MEDICAL DIET
     Route: 048

REACTIONS (1)
  - UTERINE CANCER [None]
